FAERS Safety Report 8431010-5 (Version None)
Quarter: 2012Q2

REPORT INFORMATION
  Report Type: 
  Country: None (occurrence: None)
  Receive Date: 20120612
  Receipt Date: 20120607
  Transmission Date: 20120825
  Serious: Yes (Other)
  Sender: FDA-Public Use
  Company Number: US-PFIZER INC-2012137589

PATIENT
  Sex: Male

DRUGS (4)
  1. VENLAFAXINE HCL [Suspect]
     Indication: ANXIETY
  2. EFFEXOR XR [Suspect]
     Indication: ANXIETY
  3. EFFEXOR XR [Suspect]
     Indication: OBSESSIVE-COMPULSIVE DISORDER
     Dosage: 150 MG, UNK
     Dates: start: 20120101, end: 20120101
  4. VENLAFAXINE HCL [Suspect]
     Indication: OBSESSIVE-COMPULSIVE DISORDER
     Dosage: 75 MG, 2X/DAY
     Dates: start: 20120101, end: 20120101

REACTIONS (1)
  - URINARY RETENTION [None]
